FAERS Safety Report 20807353 (Version 1)
Quarter: 2022Q2

REPORT INFORMATION
  Report Type: Spontaneous
  Country: US (occurrence: US)
  Receive Date: 20220510
  Receipt Date: 20220510
  Transmission Date: 20220720
  Serious: Yes (Other)
  Sender: FDA-Public Use
  Company Number: US-SA-SAC20220506001279

PATIENT
  Sex: Female

DRUGS (1)
  1. DUPIXENT [Suspect]
     Active Substance: DUPILUMAB
     Indication: Product used for unknown indication
     Dosage: 300 MG, QOW
     Route: 058
     Dates: start: 202109

REACTIONS (6)
  - Cardiac arrest [Unknown]
  - Peripheral swelling [Unknown]
  - Gangrene [Unknown]
  - Localised infection [Unknown]
  - Dyspnoea [Unknown]
  - Intentional dose omission [Unknown]
